FAERS Safety Report 23058726 (Version 5)
Quarter: 2025Q1

REPORT INFORMATION
  Report Type: Spontaneous
  Country: US (occurrence: US)
  Receive Date: 20231012
  Receipt Date: 20250321
  Transmission Date: 20250409
  Serious: No
  Sender: BRISTOL-MYERS SQUIBB COMPANY
  Company Number: US-BRISTOL-MYERS SQUIBB COMPANY-2023-144864

PATIENT
  Age: 52 Year
  Sex: Female

DRUGS (1)
  1. REVLIMID [Suspect]
     Active Substance: LENALIDOMIDE
     Indication: Plasma cell myeloma in remission
     Route: 048

REACTIONS (5)
  - Product dose omission issue [Unknown]
  - COVID-19 [Recovering/Resolving]
  - Product use issue [Unknown]
  - Illness [Unknown]
  - Infection [Unknown]
